FAERS Safety Report 9052745 (Version 3)
Quarter: 2013Q1

REPORT INFORMATION
  Report Type: Report from Study
  Country: CA (occurrence: CA)
  Receive Date: 20130207
  Receipt Date: 20130227
  Transmission Date: 20140127
  Serious: Yes (Other)
  Sender: FDA-Public Use
  Company Number: CA-ROCHE-1187521

PATIENT
  Age: 54 None
  Sex: Female

DRUGS (7)
  1. PEGASYS [Suspect]
     Indication: HEPATITIS C
     Route: 058
     Dates: start: 20120921
  2. RIBAVIRIN [Suspect]
     Indication: HEPATITIS C
     Route: 065
  3. BOCEPREVIR [Suspect]
     Indication: HEPATITIS C
     Route: 065
  4. ADVAIR [Concomitant]
  5. TECTA [Concomitant]
  6. ADVIL [Concomitant]
  7. TYLENOL [Concomitant]

REACTIONS (3)
  - Drug ineffective [Unknown]
  - Headache [Unknown]
  - Back pain [Unknown]
